FAERS Safety Report 9747668 (Version 1)
Quarter: 2013Q4

REPORT INFORMATION
  Report Type: Report from Study
  Country: US (occurrence: US)
  Receive Date: 20131212
  Receipt Date: 20131212
  Transmission Date: 20140711
  Serious: Yes (Other)
  Sender: FDA-Public Use
  Company Number: US-ROCHE-1252990

PATIENT
  Sex: Female
  Weight: 52.21 kg

DRUGS (2)
  1. XELODA [Suspect]
     Indication: COLON CANCER
     Route: 048
  2. XELODA [Suspect]
     Route: 048
     Dates: start: 20130613, end: 20130716

REACTIONS (1)
  - Breast cancer [Unknown]
